FAERS Safety Report 21698376 (Version 1)
Quarter: 2022Q4

REPORT INFORMATION
  Report Type: Spontaneous
  Country: US (occurrence: US)
  Receive Date: 20221208
  Receipt Date: 20221208
  Transmission Date: 20230113
  Serious: Yes (Other)
  Sender: FDA-Public Use
  Company Number: US-SA-SAC20221207001483

PATIENT
  Age: 54 Year
  Sex: Male

DRUGS (2)
  1. ELOCTATE [Suspect]
     Active Substance: EFMOROCTOCOG ALFA
     Dosage: 1600 UNTIS/3200 UNITS
     Route: 065
  2. ELOCTATE [Suspect]
     Active Substance: EFMOROCTOCOG ALFA
     Dosage: 1600 UNTIS/3200 UNITS
     Route: 065

REACTIONS (2)
  - Muscle haemorrhage [Unknown]
  - Accident [Unknown]

NARRATIVE: CASE EVENT DATE: 20221101
